FAERS Safety Report 11540145 (Version 2)
Quarter: 2015Q4

REPORT INFORMATION
  Report Type: Spontaneous
  Country: US (occurrence: US)
  Receive Date: 20150923
  Receipt Date: 20151006
  Transmission Date: 20160304
  Serious: Yes (Hospitalization, Other)
  Sender: FDA-Public Use
  Company Number: US-TURING PHARMACEUTICALS-2015TNG00002

PATIENT
  Age: 44 Year
  Sex: Male
  Weight: 56.24 kg

DRUGS (15)
  1. CLINDAMYCIN [Concomitant]
     Active Substance: CLINDAMYCIN\CLINDAMYCIN PHOSPHATE
     Dosage: 300 UNK, UNK
  2. DARAPRIM [Suspect]
     Active Substance: PYRIMETHAMINE
     Dosage: 3 TABLETS, 1X/DAY
     Route: 048
     Dates: start: 20150901
  3. FLUCONAZOLE. [Concomitant]
     Active Substance: FLUCONAZOLE
     Dosage: 200 MG, 1X/DAY
     Route: 048
  4. ATOVAQUONE. [Concomitant]
     Active Substance: ATOVAQUONE
     Dosage: 10 MG, 1X/DAY
     Route: 048
  5. PYRIMETHAMINE [Concomitant]
     Active Substance: PYRIMETHAMINE
     Dosage: 75 MG, 1X/DAY
     Route: 048
  6. TRUVADA [Concomitant]
     Active Substance: EMTRICITABINE\TENOFOVIR DISOPROXIL FUMARATE
     Dosage: 1 TABLETS, 1X/DAY
     Route: 048
  7. LEVOTHYROXINE. [Concomitant]
     Active Substance: LEVOTHYROXINE
     Dosage: 50 ?G, 1X/DAY
  8. MULTIVITAMIN [Concomitant]
     Active Substance: VITAMINS
     Dosage: 1 TABLETS, 1X/DAY
     Route: 048
  9. LEUCOVORIN. [Concomitant]
     Active Substance: LEUCOVORIN
     Dosage: 1 TABLETS, 1X/DAY
     Route: 048
  10. PANTOPRAZOLE EC [Concomitant]
     Dosage: 40 MG, 1X/DAY
     Route: 048
  11. DARAPRIM [Suspect]
     Active Substance: PYRIMETHAMINE
     Indication: TOXOPLASMOSIS
     Dosage: 75 MG, 1X/DAY
     Route: 048
     Dates: start: 20150813, end: 201508
  12. LEVETIRACETAM. [Concomitant]
     Active Substance: LEVETIRACETAM
     Dosage: 1000 MG, 2X/DAY
     Route: 048
  13. DOLUTEGRAVIR [Concomitant]
     Active Substance: DOLUTEGRAVIR
     Dosage: 50 MG, 1X/DAY
     Route: 048
  14. AZITHROMYCIN [Concomitant]
     Active Substance: AZITHROMYCIN ANHYDROUS
     Dosage: 1200 MG, 1X/WEEK
     Route: 048
  15. THIAMINE. [Concomitant]
     Active Substance: THIAMINE
     Dosage: 100 MG, 1X/DAY
     Route: 048

REACTIONS (14)
  - Hypothyroidism [None]
  - Hypovolaemia [None]
  - Central nervous system lesion [None]
  - Inappropriate antidiuretic hormone secretion [None]
  - Toxoplasmosis [Recovering/Resolving]
  - Brain oedema [None]
  - Genital herpes [None]
  - Rectal fissure [None]
  - Oral candidiasis [None]
  - Seizure [None]
  - Brain midline shift [None]
  - Transaminases increased [None]
  - Dysphagia [None]
  - Hyponatraemia [None]

NARRATIVE: CASE EVENT DATE: 20150831
